FAERS Safety Report 9830225 (Version 2)
Quarter: 2014Q1

REPORT INFORMATION
  Report Type: Report from Study
  Country: US (occurrence: US)
  Receive Date: 20140120
  Receipt Date: 20140312
  Transmission Date: 20141002
  Serious: Yes (Death, Hospitalization)
  Sender: FDA-Public Use
  Company Number: US-ACTELION-A-NJ2014-93565

PATIENT
  Age: 66 Year
  Sex: Female

DRUGS (1)
  1. TRACLEER [Suspect]
     Indication: PULMONARY HYPERTENSION
     Route: 048

REACTIONS (7)
  - Neoplasm malignant [Fatal]
  - Fall [Unknown]
  - Abasia [Unknown]
  - Pulmonary fibrosis [Unknown]
  - Rash [Unknown]
  - Epistaxis [Unknown]
  - Hypersensitivity [Unknown]
